FAERS Safety Report 25023772 (Version 2)
Quarter: 2025Q2

REPORT INFORMATION
  Report Type: Spontaneous
  Country: US (occurrence: US)
  Receive Date: 20250228
  Receipt Date: 20250415
  Transmission Date: 20250717
  Serious: No
  Sender: ASCENT PHARMACEUTICALS INC
  Company Number: US-ASCENT-2025ASSPO00009

PATIENT

DRUGS (1)
  1. ACETAMINOPHEN\OXYCODONE HYDROCHLORIDE [Suspect]
     Active Substance: ACETAMINOPHEN\OXYCODONE HYDROCHLORIDE
     Indication: Pain
     Route: 065

REACTIONS (2)
  - Drug ineffective [Unknown]
  - Product quality issue [Unknown]
